FAERS Safety Report 4441701-9 (Version None)
Quarter: 2004Q3

REPORT INFORMATION
  Report Type: 
  Country: None (occurrence: None)
  Receive Date: 20040728
  Receipt Date: 20040510
  Transmission Date: 20050211
  Serious: No
  Sender: FDA-Public Use
  Company Number: USA040567127

PATIENT
  Sex: Male

DRUGS (4)
  1. STRATTERA [Suspect]
     Dosage: 60 MG DAY
     Dates: start: 20040504
  2. ZOCOR [Concomitant]
  3. ALTACE [Concomitant]
  4. MULTI-VITAMIN [Concomitant]

REACTIONS (3)
  - NAUSEA [None]
  - PARAESTHESIA [None]
  - PILOERECTION [None]
